FAERS Safety Report 9555802 (Version 1)
Quarter: 2013Q3

REPORT INFORMATION
  Report Type: Spontaneous
  Country: US (occurrence: None)
  Receive Date: 20130726
  Receipt Date: 20130726
  Transmission Date: 20140515
  Serious: Yes (Hospitalization)
  Sender: FDA-Public Use
  Company Number: UTC-024116

PATIENT
  Age: 63 Year
  Sex: Female
  Weight: 53.2 kg

DRUGS (1)
  1. REMODULIN [Suspect]
     Indication: COR PULMONALE CHRONIC
     Dates: start: 20120919

REACTIONS (1)
  - Infusion site cellulitis [None]
